FAERS Safety Report 16440206 (Version 2)
Quarter: 2019Q3

REPORT INFORMATION
  Report Type: Spontaneous
  Country: US (occurrence: US)
  Receive Date: 20190617
  Receipt Date: 20190927
  Transmission Date: 20191004
  Serious: Yes (Hospitalization, Other)
  Sender: FDA-Public Use
  Company Number: US-PFIZER INC-2019252043

PATIENT
  Age: 73 Year
  Sex: Female
  Weight: 100 kg

DRUGS (2)
  1. LYRICA [Suspect]
     Active Substance: PREGABALIN
     Dosage: 25 MG, 1X/DAY
     Route: 048
  2. LYRICA [Suspect]
     Active Substance: PREGABALIN
     Indication: PAIN IN EXTREMITY
     Dosage: 25 MG, ONCE DAILY 3 TIMES WEEKLY
     Route: 048

REACTIONS (7)
  - Infected fistula [Unknown]
  - Body height decreased [Unknown]
  - Sepsis [Recovered/Resolved]
  - Product dose omission [Unknown]
  - Fatigue [Unknown]
  - Therapeutic product effect incomplete [Unknown]
  - Blood phosphorus abnormal [Recovering/Resolving]

NARRATIVE: CASE EVENT DATE: 2018
